FAERS Safety Report 16360309 (Version 2)
Quarter: 2019Q2

REPORT INFORMATION
  Report Type: Spontaneous
  Country: DE (occurrence: DE)
  Receive Date: 20190528
  Receipt Date: 20190601
  Transmission Date: 20190711
  Serious: Yes (Hospitalization, Other)
  Sender: FDA-Public Use
  Company Number: DE-AUROBINDO-AUR-APL-2019-029097

PATIENT

DRUGS (8)
  1. ISONIAZID. [Suspect]
     Active Substance: ISONIAZID
     Indication: TUBERCULOSIS
     Dosage: 200 MILLIGRAM, UNK
     Route: 048
  2. ISONIAZID. [Suspect]
     Active Substance: ISONIAZID
     Indication: TUBERCULOSIS
     Dosage: 200 MILLIGRAM (INITIALLY, GIVEN IV AS HE WAS BARELY ABLE TO EAT )
     Route: 042
  3. RIFAMPIN. [Suspect]
     Active Substance: RIFAMPIN
     Indication: TUBERCULOSIS
     Dosage: 450 MILLIGRAM (INITIALLY, GIVEN IV AS HE WAS BARELY ABLE TO EAT)
     Route: 042
  4. ETHAMBUTOL [Suspect]
     Active Substance: ETHAMBUTOL HYDROCHLORIDE
     Indication: TUBERCULOSIS
     Dosage: 1000 MILLIGRAM (INITIALLY, GIVEN IV AS HE WAS BARELY ABLE TO EAT)
     Route: 042
  5. LEVOFLOXACIN. [Suspect]
     Active Substance: LEVOFLOXACIN
     Indication: TUBERCULOSIS
     Dosage: 500 MILLIGRAM (INITIALLY, GIVEN IV AS HE WAS BARELY ABLE TO EAT )
     Route: 042
  6. ETHAMBUTOL [Suspect]
     Active Substance: ETHAMBUTOL HYDROCHLORIDE
     Indication: TUBERCULOSIS
     Dosage: 1000 MILLIGRAM, UNK
     Route: 048
  7. RIFAMPIN. [Suspect]
     Active Substance: RIFAMPIN
     Indication: TUBERCULOSIS
     Dosage: 450 MILLIGRAM, UNK
     Route: 048
  8. PYRAZINAMID [Suspect]
     Active Substance: PYRAZINAMIDE
     Indication: TUBERCULOSIS
     Dosage: 1500 MILLIGRAM, UNK
     Route: 048

REACTIONS (17)
  - Asthenia [Recovered/Resolved]
  - Pyrexia [Recovered/Resolved]
  - Brain oedema [Recovered/Resolved]
  - Cryptococcosis [Recovered/Resolved]
  - Disorientation [Recovered/Resolved]
  - Discharge [Recovered/Resolved]
  - Haemoglobin decreased [Recovered/Resolved]
  - Central nervous system lesion [Recovered/Resolved]
  - Vomiting [Recovered/Resolved]
  - Paradoxical drug reaction [Recovered/Resolved]
  - Headache [Recovered/Resolved]
  - C-reactive protein increased [Recovered/Resolved]
  - Unmasking of previously unidentified disease [Recovered/Resolved]
  - Hemiplegia [Recovered/Resolved]
  - Immune reconstitution inflammatory syndrome [Recovered/Resolved]
  - Blood fibrinogen increased [Recovered/Resolved]
  - Central nervous system necrosis [Recovered/Resolved]
